FAERS Safety Report 5032856-6 (Version None)
Quarter: 2006Q2

REPORT INFORMATION
  Report Type: 
  Country: None (occurrence: None)
  Receive Date: 20060622
  Receipt Date: 20060508
  Transmission Date: 20061013
  Serious: Yes (Death, Life-Threatening, Hospitalization)
  Sender: FDA-Public Use
  Company Number: BE-GLAXOSMITHKLINE-B0423477A

PATIENT
  Age: 74 Year
  Sex: Male
  Weight: 85 kg

DRUGS (2)
  1. AUGMENTIN '125' [Suspect]
     Indication: INFECTION PROPHYLAXIS
     Dosage: 200MG PER DAY
     Route: 042
     Dates: start: 20060311
  2. GLUCAGON [Concomitant]
     Route: 065

REACTIONS (8)
  - ANAPHYLACTIC SHOCK [None]
  - ANURIA [None]
  - BRONCHOSPASM [None]
  - CARDIAC ARREST [None]
  - DEATH [None]
  - HYPOXIA [None]
  - PHARYNGOLARYNGEAL PAIN [None]
  - VASODILATATION [None]
